FAERS Safety Report 10559718 (Version 6)
Quarter: 2015Q1

REPORT INFORMATION
  Report Type: Spontaneous
  Country: US (occurrence: US)
  Receive Date: 20141103
  Receipt Date: 20150224
  Transmission Date: 20150720
  Serious: No
  Sender: FDA-Public Use
  Company Number: US-PFIZER INC-2014300632

PATIENT
  Age: 84 Year
  Sex: Male

DRUGS (4)
  1. LISINOPRIL. [Concomitant]
     Active Substance: LISINOPRIL
     Dosage: UNK
  2. SUTENT [Suspect]
     Active Substance: SUNITINIB MALATE
     Indication: GASTROINTESTINAL STROMAL CANCER
     Dosage: 50 MG, 1X/DAY (ONE A DAY)
     Route: 048
     Dates: start: 20140908, end: 20140922
  3. CLONAZEPAM. [Concomitant]
     Active Substance: CLONAZEPAM
     Dosage: UNK
  4. SIMVASTATIN. [Concomitant]
     Active Substance: SIMVASTATIN
     Dosage: UNK

REACTIONS (6)
  - Confusional state [Unknown]
  - Drug intolerance [Unknown]
  - White blood cell count abnormal [Recovered/Resolved]
  - White blood cell count decreased [Unknown]
  - Yellow skin [Unknown]
  - Malaise [Unknown]

NARRATIVE: CASE EVENT DATE: 2014
